FAERS Safety Report 5035868-1 (Version None)
Quarter: 2006Q2

REPORT INFORMATION
  Report Type: 
  Country: None (occurrence: None)
  Receive Date: 20060526
  Receipt Date: 20060209
  Transmission Date: 20061013
  Serious: Yes (Hospitalization)
  Sender: FDA-Public Use
  Company Number: WAES 0602USA02390

PATIENT
  Age: 76 Year
  Sex: Male

DRUGS (1)
  1. VYTORIN [Suspect]
     Indication: BLOOD CHOLESTEROL
     Dosage: 10-40 MG/DAILY/PO
     Route: 048
     Dates: start: 20050901, end: 20060207

REACTIONS (1)
  - MYALGIA [None]
